FAERS Safety Report 7177799-7 (Version None)
Quarter: 2010Q4

REPORT INFORMATION
  Report Type: 
  Country: None (occurrence: None)
  Receive Date: 20101208
  Receipt Date: 20101122
  Transmission Date: 20110411
  Serious: Yes (Other)
  Sender: FDA-Public Use
  Company Number: 2010P1002822

PATIENT
  Age: 62 Year
  Sex: Male
  Weight: 106.5953 kg

DRUGS (5)
  1. CARBAMAZEPINE EXTENDED RELEASE TABLETS USP 400MG (NO PREF. NAME) [Suspect]
     Indication: EPILEPSY
     Dosage: 800 MG; QD; PO, 400 MG; HS; PO
     Route: 048
     Dates: start: 20090101
  2. CARBAMAZEPINE EXTENDED RELEASE 200MG (SANDOZ) (NO PREF. NAME) [Suspect]
     Indication: EPILEPSY
     Dosage: 200 MG; QD; PO, 400 MG; QD; PO
     Route: 048
     Dates: start: 20090101, end: 20101117
  3. CARBAMAZEPINE EXTENDED RELEASE 200MG (SANDOZ) (NO PREF. NAME) [Suspect]
     Indication: EPILEPSY
     Dosage: 200 MG; QD; PO, 400 MG; QD; PO
     Route: 048
     Dates: start: 20101117
  4. LEVETIRACETAM [Concomitant]
  5. MYSOLINE [Concomitant]

REACTIONS (3)
  - ANTICONVULSANT DRUG LEVEL DECREASED [None]
  - CONVULSION [None]
  - PRODUCT SUBSTITUTION ISSUE [None]
